FAERS Safety Report 23611490 (Version 1)
Quarter: 2024Q1

REPORT INFORMATION
  Report Type: Spontaneous
  Country: BE (occurrence: BE)
  Receive Date: 20240308
  Receipt Date: 20240308
  Transmission Date: 20240410
  Serious: Yes (Hospitalization)
  Sender: FDA-Public Use
  Company Number: None

PATIENT
  Age: 3 Year
  Sex: Female

DRUGS (4)
  1. AZITHROMYCIN [Interacting]
     Active Substance: AZITHROMYCIN
     Indication: Respiratory tract infection
     Dosage: UNK
     Route: 065
  2. COLCHICINE [Interacting]
     Active Substance: COLCHICINE
     Indication: Familial mediterranean fever
     Dosage: 1 DOSAGE FORM, QD (FOR A FEW DAYS)
     Route: 065
     Dates: end: 20240110
  3. COLCHICINE [Interacting]
     Active Substance: COLCHICINE
     Dosage: 0.5 MILLIGRAM, QD
     Route: 065
  4. COLCHICINE [Interacting]
     Active Substance: COLCHICINE
     Dosage: 1 MILLIGRAM, QD
     Route: 065

REACTIONS (3)
  - Urine output decreased [Recovered/Resolved]
  - Diarrhoea [Recovered/Resolved]
  - Labelled drug-drug interaction issue [Recovered/Resolved]
